FAERS Safety Report 7741570-5 (Version None)
Quarter: 2011Q3

REPORT INFORMATION
  Report Type: 
  Country: None (occurrence: None)
  Receive Date: 20110909
  Receipt Date: 20110831
  Transmission Date: 20111222
  Serious: Yes (Hospitalization)
  Sender: FDA-Public Use
  Company Number: JP-ASTRAZENECA-2011SE52748

PATIENT
  Age: 67 Year
  Sex: Female

DRUGS (3)
  1. CRESTOR [Suspect]
     Indication: DYSLIPIDAEMIA
     Route: 048
     Dates: start: 20110317, end: 20110802
  2. LOSARTAN POTASSIUM AND HYDROCHLOROTHIAZIDE [Concomitant]
     Dosage: DOSE UNKNOWN; EVERY DAY
     Route: 048
     Dates: start: 20080516
  3. NORVASC [Concomitant]
     Dosage: DOSE UNKNOWN; EVERY DAY
     Route: 048
     Dates: start: 20020517

REACTIONS (1)
  - AUTOIMMUNE HEPATITIS [None]
